FAERS Safety Report 7967169-3 (Version None)
Quarter: 2011Q4

REPORT INFORMATION
  Report Type: 
  Country: None (occurrence: None)
  Receive Date: 20111209
  Receipt Date: 20111130
  Transmission Date: 20120403
  Serious: Yes (Hospitalization)
  Sender: FDA-Public Use
  Company Number: TR-JNJFOC-20111201352

PATIENT
  Sex: Female
  Weight: 88 kg

DRUGS (1)
  1. INFLIXIMAB, RECOMBINANT [Suspect]
     Indication: BEHCET'S SYNDROME
     Route: 042
     Dates: start: 20110601, end: 20111001

REACTIONS (2)
  - MALIGNANT MELANOMA [None]
  - OFF LABEL USE [None]
